FAERS Safety Report 5842817-2 (Version None)
Quarter: 2008Q3

REPORT INFORMATION
  Report Type: 
  Country: None (occurrence: None)
  Receive Date: 20080811
  Receipt Date: 20080801
  Transmission Date: 20090109
  Serious: Yes (Hospitalization)
  Sender: FDA-Public Use
  Company Number: 163-21880-08080058

PATIENT
  Age: 86 Year
  Sex: Male

DRUGS (6)
  1. REVLIMID [Suspect]
     Indication: MYELODYSPLASTIC SYNDROME
     Dosage: 10 MG, 1 IN 1 D, ORAL; 5 MG, 1 IN 2 D, ORAL
     Route: 048
     Dates: start: 20080712, end: 20080701
  2. REVLIMID [Suspect]
     Indication: MYELODYSPLASTIC SYNDROME
     Dosage: 10 MG, 1 IN 1 D, ORAL; 5 MG, 1 IN 2 D, ORAL
     Route: 048
     Dates: start: 20080701
  3. SYNTHROID [Concomitant]
  4. ASPIRIN TAB [Concomitant]
  5. DYAZIDE [Concomitant]
  6. DIGOXIN [Concomitant]

REACTIONS (3)
  - CARDIAC OUTPUT DECREASED [None]
  - CARDIAC VALVE DISEASE [None]
  - PLATELET COUNT DECREASED [None]
